FAERS Safety Report 21493219 (Version 1)
Quarter: 2022Q4

REPORT INFORMATION
  Report Type: Spontaneous
  Country: US (occurrence: US)
  Receive Date: 20221021
  Receipt Date: 20221021
  Transmission Date: 20230112
  Serious: No
  Sender: FDA-Public Use
  Company Number: US-ALLERGAN-2205727US

PATIENT
  Sex: Female

DRUGS (2)
  1. COMBIGAN [Suspect]
     Active Substance: BRIMONIDINE TARTRATE\TIMOLOL MALEATE
     Indication: Product used for unknown indication
     Dosage: 2X DAY EVERY 12 HOURS
     Dates: start: 202110
  2. LATANOPROST [Concomitant]
     Active Substance: LATANOPROST
     Dosage: 1 DF, QHS

REACTIONS (7)
  - Eye haemorrhage [Unknown]
  - Ocular hyperaemia [Unknown]
  - Skin irritation [Unknown]
  - Cough [Unknown]
  - Pruritus [Unknown]
  - Alopecia [Unknown]
  - Hypersensitivity [Unknown]
